FAERS Safety Report 15096314 (Version 3)
Quarter: 2018Q3

REPORT INFORMATION
  Report Type: Spontaneous
  Country: US (occurrence: US)
  Receive Date: 20180702
  Receipt Date: 20180827
  Transmission Date: 20181010
  Serious: No
  Sender: FDA-Public Use
  Company Number: US-PFIZER INC-2018264494

PATIENT
  Age: 45 Year
  Sex: Male

DRUGS (5)
  1. DUPIXENT [Suspect]
     Active Substance: DUPILUMAB
     Dosage: 1 DF, CYCLIC (EVERY OTHER WEEK)
     Dates: start: 201710
  2. DUPIXENT [Suspect]
     Active Substance: DUPILUMAB
     Indication: ECZEMA
     Dosage: 2 DF, UNK
     Route: 058
     Dates: start: 201710
  3. EUCRISA [Suspect]
     Active Substance: CRISABOROLE
     Indication: ECZEMA
     Dosage: 2 %, 2X/DAY
     Dates: start: 201709, end: 2017
  4. TRIAMCINOLONE [Suspect]
     Active Substance: TRIAMCINOLONE
     Indication: ECZEMA
     Dosage: 0.1 %, UNK
     Dates: start: 201707
  5. ELIDEL [Suspect]
     Active Substance: PIMECROLIMUS
     Indication: ECZEMA
     Dosage: UNK

REACTIONS (4)
  - Ocular hyperaemia [Not Recovered/Not Resolved]
  - Eye irritation [Unknown]
  - Eye pruritus [Not Recovered/Not Resolved]
  - Rash [Not Recovered/Not Resolved]

NARRATIVE: CASE EVENT DATE: 20180630
